FAERS Safety Report 19379903 (Version 2)
Quarter: 2021Q3

REPORT INFORMATION
  Report Type: Spontaneous
  Country: PT (occurrence: PT)
  Receive Date: 20210607
  Receipt Date: 20210715
  Transmission Date: 20211014
  Serious: Yes (Other)
  Sender: FDA-Public Use
  Company Number: NVSC2021PT122932

PATIENT
  Age: 52 Year
  Sex: Female
  Weight: 69 kg

DRUGS (8)
  1. PERTUZUMAB. [Suspect]
     Active Substance: PERTUZUMAB
     Indication: BREAST CANCER
     Dosage: 420 MG, Q3W (MOST RECENT DOSE PRIOR TO EVENT ONSET: 21/MAR/2019)
     Route: 042
     Dates: start: 20180802
  2. DOCETAXEL. [Suspect]
     Active Substance: DOCETAXEL
     Indication: BREAST CANCER
     Dosage: 136.8 MG, Q3W (MOST RECENT DOSE PRIOR TO ONSET OF EVENT: 31/JAN/2019)
     Route: 042
     Dates: start: 20180803
  3. LAPATINIB [Suspect]
     Active Substance: LAPATINIB
     Indication: BREAST CANCER
     Dosage: 1000 MG, Q3W
     Route: 048
     Dates: start: 20190510
  4. CAPECITABINE. [Suspect]
     Active Substance: CAPECITABINE
     Indication: BREAST CANCER
     Dosage: 1150 MG, Q3W
     Route: 048
     Dates: start: 20190510
  5. TRASTUZUMAB. [Suspect]
     Active Substance: TRASTUZUMAB
     Indication: BREAST CANCER
     Dosage: 414 MG, Q3W (MOST RECENT DOSE PRIOR TO ONSET OF EVENT: 21/MAR/2019)
     Route: 042
     Dates: start: 20180802
  6. ANASTROZOLE. [Suspect]
     Active Substance: ANASTROZOLE
     Indication: BREAST CANCER
     Dosage: 20 MG, Q4W
     Route: 048
     Dates: start: 20190131
  7. VINORELBINE [Suspect]
     Active Substance: VINORELBINE TARTRATE
     Indication: BREAST CANCER
     Dosage: UNK UNK, QMO
     Route: 042
     Dates: start: 20201201
  8. TRASTUZUMAB EMTANSINE [Suspect]
     Active Substance: ADO-TRASTUZUMAB EMTANSINE
     Indication: BREAST CANCER
     Dosage: 3.76 MG/KG, QMO (13/MAR/2020 MOST RECENT DOSE)
     Route: 042
     Dates: start: 20190905

REACTIONS (1)
  - Neutropenia [Recovered/Resolved]

NARRATIVE: CASE EVENT DATE: 20210102
